FAERS Safety Report 4345788-3 (Version None)
Quarter: 2004Q2

REPORT INFORMATION
  Report Type: 
  Country: None (occurrence: None)
  Receive Date: 20040421
  Receipt Date: 19981216
  Transmission Date: 20050107
  Serious: Yes (Hospitalization)
  Sender: FDA-Public Use
  Company Number: EZFA 00276

PATIENT
  Age: 39 Year
  Sex: Male

DRUGS (1)
  1. POVIDONE IODINE [Suspect]
     Dosage: EPIDURAL
     Route: 008
     Dates: start: 19980112, end: 19980112

REACTIONS (1)
  - EPILEPSY [None]
